APPROVED DRUG PRODUCT: THRIVE
Active Ingredient: NICOTINE POLACRILEX
Strength: EQ 4MG BASE
Dosage Form/Route: GUM, CHEWING;BUCCAL
Application: A077656 | Product #001
Applicant: GLAXOSMITHKLINE CONSUMER HEALTHCARE
Approved: Jun 19, 2007 | RLD: No | RS: No | Type: DISCN